FAERS Safety Report 10025154 (Version 1)
Quarter: 2014Q1

REPORT INFORMATION
  Report Type: Spontaneous
  Country: US (occurrence: US)
  Receive Date: 20140320
  Receipt Date: 20140320
  Transmission Date: 20141002
  Serious: Yes (Other)
  Sender: FDA-Public Use
  Company Number: US-PFIZER INC-2014069553

PATIENT
  Sex: Male

DRUGS (1)
  1. HEPARIN SODIUM [Suspect]
     Dosage: UNK
     Route: 042
     Dates: start: 20120212, end: 20120223

REACTIONS (4)
  - Heparin-induced thrombocytopenia [Unknown]
  - Heparin-induced thrombocytopenia [Unknown]
  - Gangrene [Unknown]
  - Peripheral ischaemia [Unknown]
